FAERS Safety Report 5741120-9 (Version None)
Quarter: 2008Q2

REPORT INFORMATION
  Report Type: 
  Country: None (occurrence: None)
  Receive Date: 20080516
  Receipt Date: 20080507
  Transmission Date: 20081010
  Serious: Yes (Disabling)
  Sender: FDA-Public Use
  Company Number: GB-PFIZER INC-2008040090

PATIENT
  Age: 61 Year
  Sex: Male
  Weight: 76 kg

DRUGS (10)
  1. CHANTIX [Suspect]
     Indication: SMOKING CESSATION THERAPY
     Route: 048
     Dates: start: 20080121, end: 20080413
  2. ALLOPURINOL [Concomitant]
     Indication: GOUT
     Route: 048
  3. BENDROFLUAZIDE [Concomitant]
     Indication: HYPERTENSION
  4. CO-DYDRAMOL [Concomitant]
  5. PENICILLAMINE [Concomitant]
     Indication: RHEUMATOID ARTHRITIS
     Route: 048
  6. PREDNISOLONE [Concomitant]
     Indication: RHEUMATOID ARTHRITIS
     Route: 048
  7. QUININE [Concomitant]
     Indication: MUSCLE SPASMS
  8. RAMIPRIL [Concomitant]
     Indication: HYPERTENSION
     Route: 048
  9. SERETIDE [Concomitant]
     Indication: ASTHMA
  10. VENLAFAXINE HCL [Concomitant]
     Indication: DEPRESSION
     Route: 048

REACTIONS (2)
  - DEPRESSION [None]
  - SELF-INJURIOUS IDEATION [None]
